FAERS Safety Report 4746039-8 (Version None)
Quarter: 2005Q3

REPORT INFORMATION
  Report Type: 
  Country: None (occurrence: None)
  Receive Date: 20050816
  Receipt Date: 20050803
  Transmission Date: 20060218
  Serious: Yes (Death)
  Sender: FDA-Public Use
  Company Number: US-JNJFOC-20050507147

PATIENT
  Sex: Female
  Weight: 68.04 kg

DRUGS (11)
  1. MOTRIN [Suspect]
     Indication: DRUG USE FOR UNKNOWN INDICATION
     Dosage: 800 MG, TWICE TO THREE TIMES, AS NEEDED
  2. NORTRIPTYLINE HCL [Suspect]
     Indication: SUICIDE ATTEMPT
  3. AMITRIPTYLINE HCL [Suspect]
     Indication: SUICIDE ATTEMPT
  4. VENLAFAXINE [Suspect]
     Indication: SUICIDE ATTEMPT
  5. NEURONTIN [Suspect]
  6. NEURONTIN [Suspect]
     Indication: MOVEMENT DISORDER
  7. NEURONTIN [Suspect]
     Indication: ALCOHOLIC SEIZURE
  8. NEURONTIN [Suspect]
     Indication: BIPOLAR DISORDER
  9. OXAZEPAM [Concomitant]
  10. BENZODIAZEPINE DERIVATIVES [Concomitant]
  11. OPIOIDS [Concomitant]

REACTIONS (3)
  - COMPLETED SUICIDE [None]
  - LOSS OF CONSCIOUSNESS [None]
  - MULTIPLE DRUG OVERDOSE [None]
